FAERS Safety Report 7962769-9 (Version None)
Quarter: 2011Q4

REPORT INFORMATION
  Report Type: 
  Country: None (occurrence: None)
  Receive Date: 20111207
  Receipt Date: 20111130
  Transmission Date: 20120403
  Serious: Yes (Hospitalization, Other)
  Sender: FDA-Public Use
  Company Number: US-ABBOTT-11P-163-0870733-00

PATIENT
  Sex: Female
  Weight: 58.112 kg

DRUGS (5)
  1. HUMIRA [Suspect]
     Dates: start: 20111110, end: 20111110
  2. OMEPRAZOLE [Concomitant]
     Indication: GASTROOESOPHAGEAL REFLUX DISEASE
  3. HUMIRA [Suspect]
     Indication: CROHN'S DISEASE
     Dosage: STARTING DOSE
     Route: 058
     Dates: start: 20111027, end: 20111027
  4. PREDNISONE TAB [Concomitant]
     Indication: CROHN'S DISEASE
  5. FLU VACCINE [Concomitant]
     Indication: PRODUCT USED FOR UNKNOWN INDICATION
     Dates: start: 20111001, end: 20111001

REACTIONS (6)
  - ROAD TRAFFIC ACCIDENT [None]
  - VOMITING [None]
  - LOSS OF CONSCIOUSNESS [None]
  - PNEUMONIA [None]
  - LACERATION [None]
  - SYNCOPE [None]
